FAERS Safety Report 4369353-7 (Version None)
Quarter: 2004Q2

REPORT INFORMATION
  Report Type: 
  Country: None (occurrence: None)
  Receive Date: 20040527
  Receipt Date: 20040507
  Transmission Date: 20050107
  Serious: Yes (Other)
  Sender: FDA-Public Use
  Company Number: USA040567009

PATIENT
  Age: 82 Year
  Sex: Female
  Weight: 45 kg

DRUGS (1)
  1. EVISTA [Suspect]
     Indication: OSTEOPOROSIS

REACTIONS (3)
  - CEREBROVASCULAR ACCIDENT [None]
  - INSOMNIA [None]
  - MUSCLE CRAMP [None]
